FAERS Safety Report 19473234 (Version 2)
Quarter: 2021Q2

REPORT INFORMATION
  Report Type: Spontaneous
  Country: US (occurrence: US)
  Receive Date: 20210629
  Receipt Date: 20210630
  Transmission Date: 20210717
  Serious: Yes (Other)
  Sender: FDA-Public Use
  Company Number: US-ROCHE-2857544

PATIENT
  Sex: Male
  Weight: 74.91 kg

DRUGS (2)
  1. RIBAVIRIN. [Concomitant]
     Active Substance: RIBAVIRIN
     Indication: HEPATITIS C
     Dates: start: 2002, end: 2003
  2. PEGASYS [Suspect]
     Active Substance: PEGINTERFERON ALFA-2A
     Indication: HEPATITIS C
     Dosage: ONGOING: NO
     Route: 058
     Dates: start: 2002, end: 2003

REACTIONS (14)
  - Disturbance in attention [Not Recovered/Not Resolved]
  - Feeling abnormal [Not Recovered/Not Resolved]
  - General physical health deterioration [Not Recovered/Not Resolved]
  - Headache [Not Recovered/Not Resolved]
  - Rheumatoid arthritis [Not Recovered/Not Resolved]
  - Tremor [Not Recovered/Not Resolved]
  - Gastrointestinal infection [Unknown]
  - Urinary tract infection [Unknown]
  - Bladder cancer [Not Recovered/Not Resolved]
  - Prostatitis [Unknown]
  - Immune system disorder [Unknown]
  - Prostate infection [Unknown]
  - Prostate cancer [Recovered/Resolved]
  - Pyrexia [Unknown]
